FAERS Safety Report 9740001 (Version 2)
Quarter: 2013Q4

REPORT INFORMATION
  Report Type: Spontaneous
  Country: PL (occurrence: PL)
  Receive Date: 20131209
  Receipt Date: 20131209
  Transmission Date: 20140711
  Serious: Yes (Life-Threatening, Hospitalization, Other)
  Sender: FDA-Public Use
  Company Number: PL-ABBVIE-13P-129-1163612-00

PATIENT
  Age: 67 Year
  Sex: Male
  Weight: 87 kg

DRUGS (6)
  1. HUMIRA [Suspect]
     Indication: COLITIS ULCERATIVE
     Dosage: ONE DOSE
     Route: 058
     Dates: start: 20130919, end: 20130919
  2. MESALAZINE [Concomitant]
     Indication: COLITIS ULCERATIVE
     Route: 048
     Dates: start: 2010
  3. PREDNISONUM [Concomitant]
     Indication: COLITIS ULCERATIVE
     Route: 048
     Dates: start: 201303
  4. BETALOC [Concomitant]
     Indication: HYPERTENSION
     Route: 048
     Dates: start: 2009
  5. AMLODIPINUM TAD [Concomitant]
     Indication: HYPERTENSION
     Route: 048
     Dates: start: 2010
  6. DIUVER [Concomitant]
     Indication: HYPERTENSION
     Route: 048
     Dates: start: 2012

REACTIONS (2)
  - Cerebral disorder [Unknown]
  - Listeria sepsis [Recovered/Resolved]
